FAERS Safety Report 5456700-8 (Version None)
Quarter: 2007Q3

REPORT INFORMATION
  Report Type: 
  Country: None (occurrence: None)
  Receive Date: 20070918
  Receipt Date: 20070914
  Transmission Date: 20080115
  Serious: Yes (Hospitalization)
  Sender: FDA-Public Use
  Company Number: US-ASTRAZENECA-2007UW21802

PATIENT
  Age: 79 Year
  Sex: Female
  Weight: 54.4 kg

DRUGS (14)
  1. PULMICORT [Suspect]
     Indication: CHRONIC OBSTRUCTIVE PULMONARY DISEASE
     Route: 055
     Dates: start: 20030101
  2. PULMICORT [Suspect]
     Indication: ASTHMA
     Route: 055
     Dates: start: 20030101
  3. SYNTHROID [Concomitant]
  4. DIGOXIN [Concomitant]
  5. AMARYL [Concomitant]
  6. THEOPHYLLINE [Concomitant]
  7. SINGULAIR [Concomitant]
  8. CARDIZEM LA [Concomitant]
  9. ZOCOR [Concomitant]
  10. GLUCOPHAGE [Concomitant]
  11. ACCUPRIL [Concomitant]
  12. TRICOR [Concomitant]
  13. LORAZEPAM [Concomitant]
  14. DUONEB [Concomitant]

REACTIONS (2)
  - PNEUMONIA [None]
  - RESPIRATORY DISORDER [None]
